FAERS Safety Report 21844702 (Version 1)
Quarter: 2023Q1

REPORT INFORMATION
  Report Type: Spontaneous
  Country: US (occurrence: None)
  Receive Date: 20230110
  Receipt Date: 20230110
  Transmission Date: 20230417
  Serious: Yes (Hospitalization, Other)
  Sender: FDA-Public Use
  Company Number: None

PATIENT
  Age: 55 Year
  Sex: Male
  Weight: 100.8 kg

DRUGS (1)
  1. ELIQUIS [Suspect]
     Active Substance: APIXABAN
     Indication: Thrombosis prophylaxis
     Dosage: OTHER QUANTITY : 1 TABLET(S);?FREQUENCY : TWICE A DAY;?
     Route: 048
     Dates: start: 20180808, end: 20210401

REACTIONS (8)
  - Blindness unilateral [None]
  - Vision blurred [None]
  - Tunnel vision [None]
  - Visual field defect [None]
  - Hypoaesthesia [None]
  - Haemangioma [None]
  - Cerebral haemorrhage [None]
  - Hypoaesthesia [None]

NARRATIVE: CASE EVENT DATE: 20190117
